FAERS Safety Report 15779929 (Version 1)
Quarter: 2019Q1

REPORT INFORMATION
  Report Type: Spontaneous
  Country: NL (occurrence: NL)
  Receive Date: 20190102
  Receipt Date: 20190102
  Transmission Date: 20190417
  Serious: Yes (Congenital Anomaly)
  Sender: FDA-Public Use
  Company Number: NL-TEVA-2018-NL-993072

PATIENT
  Sex: Female
  Weight: 3 kg

DRUGS (2)
  1. FOLIUMZUUR [Concomitant]
     Active Substance: FOLIC ACID
  2. ATORVASTATINE TABLET, 40 MG (MILLIGRAM) [Suspect]
     Active Substance: ATORVASTATIN
     Indication: HYPERCHOLESTEROLAEMIA
     Dosage: 40 MILLIGRAM DAILY; 1 TABLET ONCE A DAY

REACTIONS (2)
  - Maternal exposure during pregnancy [Unknown]
  - Congenital bowing of long bones [Not Recovered/Not Resolved]
